FAERS Safety Report 13017971 (Version 1)
Quarter: 2016Q4

REPORT INFORMATION
  Report Type: Spontaneous
  Country: US (occurrence: US)
  Receive Date: 20161212
  Receipt Date: 20161212
  Transmission Date: 20170207
  Serious: No
  Sender: FDA-Public Use
  Company Number: US-BAYER-2016-232325

PATIENT
  Age: 5 Year
  Sex: Female

DRUGS (3)
  1. CLARITIN [Suspect]
     Active Substance: LORATADINE
     Indication: BRONCHIAL HYPERREACTIVITY
     Dosage: 2 DF, ONCE
     Dates: start: 20161206, end: 20161206
  2. CLARITIN [Suspect]
     Active Substance: LORATADINE
     Indication: BRONCHIAL HYPERREACTIVITY
     Dosage: 1 DF, PRN, OFF AND ON
     Route: 048
     Dates: start: 2015
  3. VITAMINS NOS [Concomitant]
     Active Substance: VITAMINS

REACTIONS (2)
  - Product use issue [Unknown]
  - Accidental exposure to product by child [Recovered/Resolved]

NARRATIVE: CASE EVENT DATE: 20161206
